FAERS Safety Report 8863537 (Version 1)
Quarter: 2012Q4

REPORT INFORMATION
  Report Type: 
  Country: US (occurrence: US)
  Receive Date: 20121024
  Receipt Date: 20121024
  Transmission Date: 20130627
  Serious: No
  Sender: FDA-Public Use
  Company Number: US-AMGEN-USASP2011063187

PATIENT
  Age: 48 Year
  Sex: Male
  Weight: 95.24 kg

DRUGS (5)
  1. ENBREL [Suspect]
     Dosage: 50 mg, qwk
     Route: 058
  2. PREDNISONE [Concomitant]
  3. IBUPROFEN [Concomitant]
  4. LEFLUNOMIDE [Concomitant]
  5. OXYCODONE [Concomitant]

REACTIONS (2)
  - Upper respiratory tract infection [Unknown]
  - White blood cell count decreased [Unknown]
